FAERS Safety Report 7035928-X (Version None)
Quarter: 2010Q4

REPORT INFORMATION
  Report Type: 
  Country: None (occurrence: None)
  Receive Date: 20101008
  Receipt Date: 20100928
  Transmission Date: 20110411
  Serious: Yes (Other)
  Sender: FDA-Public Use
  Company Number: US-ABBOTT-10P-163-0673994-00

PATIENT
  Sex: Male
  Weight: 59.02 kg

DRUGS (1)
  1. HUMIRA [Suspect]
     Indication: PSORIASIS
     Route: 058
     Dates: start: 20091201, end: 20100501

REACTIONS (2)
  - MUSCULAR WEAKNESS [None]
  - SPINAL CORD NEOPLASM [None]
